FAERS Safety Report 8374351-2 (Version None)
Quarter: 2012Q2

REPORT INFORMATION
  Report Type: 
  Country: None (occurrence: None)
  Receive Date: 20120521
  Receipt Date: 20120509
  Transmission Date: 20120825
  Serious: Yes (Other)
  Sender: FDA-Public Use
  Company Number: JP-BRISTOL-MYERS SQUIBB COMPANY-16583890

PATIENT
  Age: 57 Year
  Sex: Female
  Weight: 59 kg

DRUGS (2)
  1. TAXOL [Suspect]
     Indication: SQUAMOUS CELL CARCINOMA OF THE CERVIX
     Dosage: 175MG/M2 ON DAY 1
     Dates: start: 20040801
  2. PARAPLATIN AQ [Suspect]
     Indication: SQUAMOUS CELL CARCINOMA OF THE CERVIX
     Dosage: (AUC) 5 ON DAY 1
     Dates: start: 20040801

REACTIONS (1)
  - ACUTE MYOCARDIAL INFARCTION [None]
